FAERS Safety Report 21109698 (Version 1)
Quarter: 2022Q3

REPORT INFORMATION
  Report Type: Spontaneous
  Country: CA (occurrence: CA)
  Receive Date: 20220721
  Receipt Date: 20220721
  Transmission Date: 20221027
  Serious: Yes (Hospitalization, Other)
  Sender: FDA-Public Use
  Company Number: CA-TEVA-2022-CA-2055837

PATIENT
  Age: 30 Year
  Sex: Male
  Weight: 71 kg

DRUGS (2)
  1. METHOTREXATE [Suspect]
     Active Substance: METHOTREXATE
     Indication: Product used for unknown indication
     Route: 065
  2. FLAGYL [Suspect]
     Active Substance: METRONIDAZOLE\METRONIDAZOLE HYDROCHLORIDE
     Indication: Product used for unknown indication
     Route: 065

REACTIONS (5)
  - Anal abscess [Recovered/Resolved]
  - Anal fistula [Recovered/Resolved]
  - Inflammation [Recovered/Resolved]
  - Leukopenia [Recovered/Resolved]
  - Sinus disorder [Recovered/Resolved]
